FAERS Safety Report 10580672 (Version 1)
Quarter: 2014Q4

REPORT INFORMATION
  Report Type: Spontaneous
  Country: US (occurrence: US)
  Receive Date: 20141113
  Receipt Date: 20141113
  Transmission Date: 20150529
  Serious: No
  Sender: FDA-Public Use
  Company Number: US-009507513-1411USA002064

PATIENT
  Sex: Female

DRUGS (5)
  1. EMEND [Suspect]
     Active Substance: APREPITANT
     Indication: PROPHYLAXIS OF NAUSEA AND VOMITING
     Dosage: 125 MG 1 HOUR PRIOR TO CHEMOTHERAPY TREATMENT (DAY 1)
     Route: 048
     Dates: start: 20141017, end: 20141017
  2. NEULASTA [Concomitant]
     Active Substance: PEGFILGRASTIM
  3. EMEND [Suspect]
     Active Substance: APREPITANT
     Dosage: 80 MG ORALLY ONCE DAILY IN THE MORNING ON DAYS 2 AND 3
     Route: 048
     Dates: start: 20141018, end: 20141019
  4. EMEND [Suspect]
     Active Substance: APREPITANT
     Dosage: 80 MG ORALLY ONCE DAILY IN THE MORNING ON DAYS 2 AND 3
     Route: 048
     Dates: start: 20141102, end: 20141103
  5. EMEND [Suspect]
     Active Substance: APREPITANT
     Dosage: 125 MG 1 HOUR PRIOR TO CHEMOTHERAPY TREATMENT (DAY 1)
     Route: 048
     Dates: start: 20141101, end: 20141101

REACTIONS (2)
  - Nausea [Not Recovered/Not Resolved]
  - Fatigue [Not Recovered/Not Resolved]

NARRATIVE: CASE EVENT DATE: 2014
